FAERS Safety Report 21285155 (Version 1)
Quarter: 2022Q3

REPORT INFORMATION
  Report Type: Spontaneous
  Country: FR (occurrence: FR)
  Receive Date: 20220902
  Receipt Date: 20220902
  Transmission Date: 20221027
  Serious: Yes (Other)
  Sender: FDA-Public Use
  Company Number: None

PATIENT
  Age: 35 Year
  Sex: Female

DRUGS (2)
  1. VANCOMYCIN HYDROCHLORIDE [Suspect]
     Active Substance: VANCOMYCIN HYDROCHLORIDE
     Indication: Eschar
     Dosage: 12 GRAM DAILY; 4G EVERY 8 HOURS , CHLORHYDRATE DE VANCOMYCINE , DURATION : 9 DAYS
     Dates: start: 20181226, end: 20190104
  2. PIPERACILLIN SODIUM\TAZOBACTAM SODIUM [Suspect]
     Active Substance: PIPERACILLIN SODIUM\TAZOBACTAM SODIUM
     Indication: Eschar
     Dosage: 12 GRAM DAILY; 4G EVERY 8 HOURS , DURATION : 9 DAYS
     Dates: start: 20181226, end: 20190104

REACTIONS (2)
  - Pancytopenia [Recovered/Resolved]
  - Rash maculo-papular [Recovered/Resolved]

NARRATIVE: CASE EVENT DATE: 20181230
